FAERS Safety Report 5198985-1 (Version None)
Quarter: 2007Q1

REPORT INFORMATION
  Report Type: 
  Country: None (occurrence: None)
  Receive Date: 20070104
  Receipt Date: 20061226
  Transmission Date: 20070707
  Serious: Yes (Hospitalization, Other)
  Sender: FDA-Public Use
  Company Number: US-AMGEN-US188820

PATIENT
  Sex: Male
  Weight: 66 kg

DRUGS (18)
  1. EPOGEN [Suspect]
     Indication: DIALYSIS
     Route: 042
     Dates: start: 20041105
  2. ALTACE [Suspect]
     Dates: end: 20060501
  3. PLAVIX [Suspect]
     Dates: end: 20060501
  4. QUININE SULFATE [Suspect]
     Dates: end: 20060501
  5. ASPIRIN [Concomitant]
     Dates: start: 20041101
  6. HEPARIN [Concomitant]
  7. AMBIEN [Concomitant]
     Dates: start: 20041101
  8. COREG [Concomitant]
  9. VITAMINS [Concomitant]
  10. INSULIN [Concomitant]
  11. LIPITOR [Concomitant]
  12. LORAZEPAM [Concomitant]
  13. PREDNISONE TAB [Concomitant]
  14. RENAGEL [Concomitant]
  15. SINEMET [Concomitant]
  16. TUMS [Concomitant]
  17. AZATHIOPRINE [Concomitant]
     Dates: start: 19930101, end: 20050101
  18. CYCLOSPORINE [Concomitant]
     Dates: start: 19930101, end: 20050101

REACTIONS (9)
  - APLASTIC ANAEMIA [None]
  - CARDIO-RESPIRATORY ARREST [None]
  - CARNITINE DECREASED [None]
  - DIABETIC COMPLICATION [None]
  - HAEMODIALYSIS [None]
  - IMPAIRED HEALING [None]
  - LEG AMPUTATION [None]
  - RENAL AND PANCREAS TRANSPLANT REJECTION [None]
  - THERAPEUTIC RESPONSE DECREASED [None]
